FAERS Safety Report 18294154 (Version 1)
Quarter: 2020Q3

REPORT INFORMATION
  Report Type: Spontaneous
  Country: US (occurrence: US)
  Receive Date: 20200922
  Receipt Date: 20200922
  Transmission Date: 20201103
  Serious: Yes (Other)
  Sender: FDA-Public Use
  Company Number: US-BAUSCH-BL-2020-026741

PATIENT
  Age: 18 Month
  Sex: Male
  Weight: 10.9 kg

DRUGS (20)
  1. SODIUM NITROPRUSSIDE. [Suspect]
     Active Substance: SODIUM NITROPRUSSIDE
     Indication: HYPERTENSION
     Dosage: DAY 5 OF HOSPITALIZATION
     Route: 065
  2. VP?16 [Concomitant]
     Active Substance: ETOPOSIDE
     Indication: NEUROBLASTOMA
     Dosage: DAY 7 ? DAY 21 OF HOSPITALIZATION
  3. CAPTOPRIL. [Suspect]
     Active Substance: CAPTOPRIL
     Indication: HYPERTENSION
     Dosage: DAY 6? DAY 16 OF HOSPITALIZATION
     Route: 065
  4. ADRIAMYCIN [Concomitant]
     Active Substance: DOXORUBICIN HYDROCHLORIDE
     Indication: NEUROBLASTOMA
     Dosage: DAY 7 ? DAY 21 OF HOSPITALIZATION
  5. PHENTOLAMINE [Suspect]
     Active Substance: PHENTOLAMINE
     Dosage: DAY 19 OF HOSPITALIZATION
     Route: 065
  6. CIS?PLATINUM [Concomitant]
     Active Substance: CISPLATIN
     Indication: NEUROBLASTOMA
     Dosage: DAY 7 ? DAY 21 OF HOSPITALIZATION
  7. CIS?PLATINUM [Concomitant]
     Active Substance: CISPLATIN
     Indication: METASTASIS
  8. ALPHA?METHYL?TYROSINE [Suspect]
     Active Substance: METYROSINE
     Indication: HYPERTENSION
     Dosage: DAY 18?DAY 23
     Route: 048
  9. ALPHA?METHYL?TYROSINE [Suspect]
     Active Substance: METYROSINE
     Dosage: DAY 27?DAY 29
     Route: 048
  10. ESMOLOL [Suspect]
     Active Substance: ESMOLOL HYDROCHLORIDE
     Indication: HYPERTENSION
     Dosage: DAY 16? DAY 18 OF HOSPITALIZATION
     Route: 065
  11. CAPTOPRIL. [Suspect]
     Active Substance: CAPTOPRIL
     Indication: RENIN INCREASED
     Dosage: DAY 19? DAY 29 OF HOSPITALIZATION
     Route: 065
  12. PHENTOLAMINE [Suspect]
     Active Substance: PHENTOLAMINE
     Indication: HYPERTENSION
     Dosage: DAY 4?DAY 5 OF HOSPITALIZATION
     Route: 065
  13. HYDRALAZINE [Concomitant]
     Active Substance: HYDRALAZINE HYDROCHLORIDE
     Indication: HYPERTENSION
     Dosage: MAXIMUM DOSE 0.11 MG/KG, DAY4?DAY 5 OF HOSPITALIZATION
  14. ALPHA?METHYL?TYROSINE [Suspect]
     Active Substance: METYROSINE
     Indication: OFF LABEL USE
     Dosage: DAY 24?DAY 26
     Route: 048
  15. ADRIAMYCIN [Concomitant]
     Active Substance: DOXORUBICIN HYDROCHLORIDE
     Indication: METASTASIS
  16. CYCLOPHOSPHAMIDE. [Concomitant]
     Active Substance: CYCLOPHOSPHAMIDE
     Indication: NEUROBLASTOMA
     Dosage: DAY 7 ? DAY 21 OF HOSPITALIZATION
  17. NIFEDIPINE. [Suspect]
     Active Substance: NIFEDIPINE
     Indication: HYPERTENSION
     Dosage: DAY 5?DAY 25 OF HOSPITALIZATION;
     Route: 065
  18. CYCLOPHOSPHAMIDE. [Concomitant]
     Active Substance: CYCLOPHOSPHAMIDE
     Indication: METASTASIS
  19. SODIUM NITROPRUSSIDE. [Suspect]
     Active Substance: SODIUM NITROPRUSSIDE
     Dosage: DAY 16?DAY 19 OF HOSPITALIZATION
     Route: 065
  20. VP?16 [Concomitant]
     Active Substance: ETOPOSIDE
     Indication: METASTASIS

REACTIONS (5)
  - Off label use [Unknown]
  - Drug effective for unapproved indication [Unknown]
  - Hypotension [Recovered/Resolved]
  - Intentional product use issue [Unknown]
  - Therapy non-responder [Unknown]
